FAERS Safety Report 7383553-3 (Version None)
Quarter: 2011Q1

REPORT INFORMATION
  Report Type: 
  Country: None (occurrence: None)
  Receive Date: 20110330
  Receipt Date: 20110321
  Transmission Date: 20110831
  Serious: Yes (Other)
  Sender: FDA-Public Use
  Company Number: NL-MEDIMMUNE-MEDI-0012979

PATIENT
  Sex: Male
  Weight: 8.9 kg

DRUGS (2)
  1. SYNAGIS [Suspect]
     Route: 030
     Dates: start: 20101004, end: 20110223
  2. SYNAGIS [Suspect]
     Route: 030
     Dates: start: 20110321, end: 20110321

REACTIONS (3)
  - WEIGHT GAIN POOR [None]
  - NASOPHARYNGITIS [None]
  - BREATH SOUNDS ABNORMAL [None]
